FAERS Safety Report 6357541-X (Version None)
Quarter: 2009Q3

REPORT INFORMATION
  Report Type: 
  Country: None (occurrence: None)
  Receive Date: 20090916
  Receipt Date: 20090909
  Transmission Date: 20100115
  Serious: Yes (Hospitalization)
  Sender: FDA-Public Use
  Company Number: FR-AVENTIS-200915351EU

PATIENT
  Age: 87 Year
  Sex: Male

DRUGS (3)
  1. FLUDEX                             /00340101/ [Suspect]
     Indication: HYPERTENSION
     Dosage: DOSE: UNK
     Route: 048
  2. PERINDOPRIL [Suspect]
     Indication: HYPERTENSION
     Route: 048
  3. PLAVIX [Concomitant]
     Dosage: DOSE: UNK

REACTIONS (4)
  - FALL [None]
  - HYPONATRAEMIA [None]
  - MICTURITION DISORDER [None]
  - PRESYNCOPE [None]
